FAERS Safety Report 8992478 (Version 1)
Quarter: 2012Q4

REPORT INFORMATION
  Report Type: 
  Country: CH (occurrence: CH)
  Receive Date: 20121231
  Receipt Date: 20121231
  Transmission Date: 20130627
  Serious: Yes (Hospitalization)
  Sender: FDA-Public Use
  Company Number: PHHY2012CH117854

PATIENT
  Sex: Male
  Weight: 70 kg

DRUGS (8)
  1. SANDIMMUN [Suspect]
     Indication: RENAL TRANSPLANT
     Dosage: 75 mg, BID
     Route: 048
     Dates: start: 2003
  2. PREDNISON [Interacting]
     Indication: NEPHROTIC SYNDROME
     Dosage: 70 mg, QD
     Route: 048
     Dates: start: 20121111
  3. SOLUMEDROL(METHYLPREDNISOLONE SODIUM SUCCINATE) INFUSION [Suspect]
     Indication: NEPHROTIC SYNDROME
     Dosage: 500 mg, QD
     Route: 042
     Dates: start: 20121108, end: 20121110
  4. IMUREK [Interacting]
     Indication: RENAL TRANSPLANT
     Dosage: 100 mg, QD
     Route: 048
     Dates: start: 200101, end: 201211
  5. CONCOR [Concomitant]
     Route: 048
  6. DELIX [Concomitant]
     Dosage: 5 mg, QD
     Route: 048
  7. SIMVASTATIN [Concomitant]
     Dosage: 10 mg, QD
     Route: 048
  8. NEOTIGASON [Concomitant]
     Dosage: 10 ml, QD
     Route: 048
     Dates: start: 20120807

REACTIONS (7)
  - Diabetes mellitus [Recovered/Resolved]
  - Renal cell carcinoma [Unknown]
  - Nephrotic syndrome [Unknown]
  - Pneumonia bacterial [Recovering/Resolving]
  - Lung infiltration [Unknown]
  - Lung consolidation [Recovering/Resolving]
  - Drug interaction [Unknown]
